FAERS Safety Report 7478194-3 (Version None)
Quarter: 2011Q2

REPORT INFORMATION
  Report Type: 
  Country: None (occurrence: None)
  Receive Date: 20110506
  Receipt Date: 20110422
  Transmission Date: 20111010
  Serious: Yes (Hospitalization)
  Sender: FDA-Public Use
  Company Number: JPI-P-014697

PATIENT
  Age: 56 Year
  Sex: Female
  Weight: 64.8644 kg

DRUGS (7)
  1. ATORVASTATIN CALCIUM [Concomitant]
  2. LISDEXAMFETAMINE DIMESYLATE (VYVANSE) [Concomitant]
  3. RISEDRONATE SODIUM [Concomitant]
  4. FEXOFENADINE [Concomitant]
  5. ESCITALOPRAM OXALATE [Concomitant]
  6. XYREM [Suspect]
     Indication: SLEEP APNOEA SYNDROME
     Dosage: 4.5 GM (2.25 GM, 2 IN 1 D), ORAL 7.5 GM (3.75 GM, 2 IN 1 D), ORAL
     Route: 048
     Dates: start: 20090529
  7. XYREM [Suspect]
     Indication: NARCOLEPSY
     Dosage: 4.5 GM (2.25 GM, 2 IN 1 D), ORAL 7.5 GM (3.75 GM, 2 IN 1 D), ORAL
     Route: 048
     Dates: start: 20090529

REACTIONS (5)
  - AGITATION [None]
  - TREMOR [None]
  - SINUSITIS [None]
  - MENINGITIS VIRAL [None]
  - DISORIENTATION [None]
